FAERS Safety Report 17898749 (Version 1)
Quarter: 2020Q2

REPORT INFORMATION
  Report Type: Report from Study
  Country: US (occurrence: US)
  Receive Date: 20200616
  Receipt Date: 20200616
  Transmission Date: 20200714
  Serious: No
  Sender: FDA-Public Use
  Company Number: NVSC2020US167019

PATIENT
  Sex: Male

DRUGS (1)
  1. ENTRESTO [Suspect]
     Active Substance: SACUBITRIL\VALSARTAN
     Indication: PRODUCT USED FOR UNKNOWN INDICATION
     Dosage: 24.26 MG, ONCE2SDO STARTED TAKING ENTRESTO APPROX 1 YEAR AGO
     Route: 048

REACTIONS (4)
  - Burning sensation [Unknown]
  - Weight increased [Unknown]
  - Nipple pain [Unknown]
  - Breast pain [Unknown]
